FAERS Safety Report 25958021 (Version 1)
Quarter: 2025Q4

REPORT INFORMATION
  Report Type: Report from Study
  Country: US (occurrence: US)
  Receive Date: 20251024
  Receipt Date: 20251024
  Transmission Date: 20260118
  Serious: Yes (Other)
  Sender: ALNYLAM PHARMACEUTICALS
  Company Number: US-ALNYLAM PHARMACEUTICALS, INC.-ALN-2025-006492

PATIENT
  Age: 76 Year

DRUGS (1)
  1. AMVUTTRA [Suspect]
     Active Substance: VUTRISIRAN
     Indication: Cardiac amyloidosis
     Dosage: UNK
     Route: 065

REACTIONS (6)
  - Glaucoma [Unknown]
  - Vision blurred [Unknown]
  - Rash [Unknown]
  - Visual impairment [Unknown]
  - Ill-defined disorder [Unknown]
  - Intentional dose omission [Unknown]
